FAERS Safety Report 9063039 (Version 1)
Quarter: 2013Q1

REPORT INFORMATION
  Report Type: Spontaneous
  Country: US (occurrence: US)
  Receive Date: 20130213
  Receipt Date: 20130213
  Transmission Date: 20140127
  Serious: Yes (Other)
  Sender: FDA-Public Use
  Company Number: US-BAYER-2013-016496

PATIENT
  Sex: Female

DRUGS (5)
  1. YASMIN [Suspect]
  2. ACIPHEX [Concomitant]
  3. ALBUTEROL [Concomitant]
     Route: 045
  4. VITAMIN E [Concomitant]
  5. ANTIHISTAMINES [Concomitant]

REACTIONS (3)
  - Thrombophlebitis superficial [None]
  - Thrombosis [None]
  - Cholecystectomy [None]
